FAERS Safety Report 6791342-3 (Version None)
Quarter: 2010Q2

REPORT INFORMATION
  Report Type: 
  Country: None (occurrence: None)
  Receive Date: 20100624
  Receipt Date: 20100616
  Transmission Date: 20101027
  Serious: Yes (Hospitalization)
  Sender: FDA-Public Use
  Company Number: US-ROCHE-711020

PATIENT
  Sex: Male
  Weight: 89.8 kg

DRUGS (1)
  1. CAPECITABINE [Suspect]
     Indication: COLORECTAL CANCER
     Dosage: X 14 DAYS, TAKEN IN MORNING AND EVENING.
     Route: 048
     Dates: start: 20100510, end: 20100610

REACTIONS (2)
  - BACTERAEMIA [None]
  - BLOOD GLUCOSE DECREASED [None]
